FAERS Safety Report 5144761-5 (Version None)
Quarter: 2006Q4

REPORT INFORMATION
  Report Type: 
  Country: None (occurrence: None)
  Receive Date: 20060905
  Receipt Date: 20060502
  Transmission Date: 20070319
  Serious: No
  Sender: FDA-Public Use
  Company Number: 34684

PATIENT
  Sex: Female

DRUGS (1)
  1. NEVANAC [Suspect]

REACTIONS (2)
  - HEADACHE [None]
  - VISION BLURRED [None]
